FAERS Safety Report 14738449 (Version 4)
Quarter: 2018Q4

REPORT INFORMATION
  Report Type: Report from Study
  Country: BR (occurrence: BR)
  Receive Date: 20180409
  Receipt Date: 20181206
  Transmission Date: 20190204
  Serious: Yes (Hospitalization)
  Sender: FDA-Public Use
  Company Number: BR-B.I. PHARMACEUTICALS,INC./RIDGEFIELD-2018-BI-013032

PATIENT
  Age: 36 Year
  Sex: Female
  Weight: 39 kg

DRUGS (12)
  1. DOMPERIDONE [Concomitant]
     Active Substance: DOMPERIDONE
     Indication: SYSTEMIC SCLERODERMA
     Route: 048
     Dates: start: 201704
  2. AMLODIPINE [Concomitant]
     Active Substance: AMLODIPINE BESYLATE
     Indication: RAYNAUD^S PHENOMENON
     Route: 048
     Dates: start: 201507
  3. VONAU [Concomitant]
     Active Substance: ONDANSETRON HYDROCHLORIDE
     Indication: VOMITING
     Route: 048
     Dates: start: 20171213
  4. LOPERAMIDA [Concomitant]
     Indication: DIARRHOEA
     Route: 048
     Dates: start: 20171113
  5. MYCOPHENOLATE MOFETIL. [Concomitant]
     Active Substance: MYCOPHENOLATE MOFETIL
     Indication: SYSTEMIC SCLERODERMA
     Route: 048
     Dates: start: 201704
  6. BOSENTANA [Concomitant]
     Active Substance: BOSENTAN
     Indication: HYPERTENSION
     Route: 048
     Dates: start: 20171212
  7. PANTOPRAZOLE [Concomitant]
     Active Substance: PANTOPRAZOLE
     Indication: GASTROOESOPHAGEAL REFLUX DISEASE
     Route: 048
     Dates: start: 2016
  8. DENOSUMAB [Concomitant]
     Active Substance: DENOSUMAB
     Indication: OSTEOPOROSIS
     Dosage: 60 MG SEMESTER
     Route: 058
     Dates: start: 201707
  9. BIBF 1120 [Suspect]
     Active Substance: NINTEDANIB
     Indication: SYSTEMIC SCLERODERMA
  10. PANTOPRAZOLE [Concomitant]
     Active Substance: PANTOPRAZOLE
     Indication: SYSTEMIC SCLERODERMA
  11. TEGRETOL XR [Concomitant]
     Active Substance: CARBAMAZEPINE
     Indication: SEIZURE
     Route: 048
     Dates: start: 2005
  12. BIBF 1120 [Suspect]
     Active Substance: NINTEDANIB
     Indication: INTERSTITIAL LUNG DISEASE
     Route: 048
     Dates: start: 20171030

REACTIONS (1)
  - Painful respiration [Recovered/Resolved]

NARRATIVE: CASE EVENT DATE: 20180303
